FAERS Safety Report 22518902 (Version 1)
Quarter: 2023Q2

REPORT INFORMATION
  Report Type: Report from Study
  Country: DE (occurrence: DE)
  Receive Date: 20230605
  Receipt Date: 20230605
  Transmission Date: 20230721
  Serious: Yes (Death, Hospitalization, Other)
  Sender: FDA-Public Use
  Company Number: None

PATIENT
  Age: 60 Year
  Sex: Female
  Weight: 72.5 kg

DRUGS (32)
  1. BEVACIZUMAB [Suspect]
     Active Substance: BEVACIZUMAB
     Indication: Neoplasm
     Dosage: 350 MILLIGRAM, Q2WK, DATE OF MOST RECENT DOSE PRIOR TO AE/SAE ONSET: 01/FEB/2023
     Route: 042
     Dates: start: 20221102, end: 20230201
  2. LEUCOVORIN [Suspect]
     Active Substance: LEUCOVORIN
     Indication: Neoplasm
     Dosage: 692 MILLIGRAM, Q2WK, DATE OF MOST RECENT DOSE PRIOR TO AE/SAE ONSET: 01/FEB/2023
     Route: 042
     Dates: start: 20221102, end: 20230201
  3. LEUCOVORIN CALCIUM [Suspect]
     Active Substance: LEUCOVORIN CALCIUM
     Indication: Neoplasm
     Dosage: UNK UNK, Q2WK
     Route: 042
     Dates: start: 20230201
  4. IRINOTECAN [Suspect]
     Active Substance: IRINOTECAN
     Indication: Neoplasm
     Dosage: 187 MILLIGRAM, Q2WK, DOSE OF LAST ADMINISTERED PRIOR TO AE/SAE ONSET: 187 MGDATE OF MOST RECENT DOSE
     Route: 042
     Dates: start: 20221102, end: 20230201
  5. FLUOROURACIL [Suspect]
     Active Substance: FLUOROURACIL
     Indication: Neoplasm
     Dosage: 2076 MILLIGRAM, Q2WK, DATE OF MOST RECENT DOSE OF PRIOR TO AE/SAE ONSET: 01/02/2023
     Route: 042
     Dates: start: 20221102, end: 20230201
  6. FUROSEMIDE [Concomitant]
     Active Substance: FUROSEMIDE
     Dosage: UNK
  7. METAMIZOLE [Concomitant]
     Active Substance: METAMIZOLE
     Dosage: UNK
  8. PANTOPRAZOLE SODIUM [Concomitant]
     Active Substance: PANTOPRAZOLE SODIUM
  9. MORPHINE [Concomitant]
     Active Substance: MORPHINE
     Indication: Pain
     Dosage: 50 MILLIGRAM
     Dates: start: 20230314, end: 20230317
  10. ATORVASTATIN [Concomitant]
     Active Substance: ATORVASTATIN
     Dosage: UNK
  11. PROTAPHANE [Concomitant]
     Active Substance: INSULIN HUMAN
     Indication: Diabetes mellitus
     Dosage: 100IE
     Dates: start: 20230315
  12. CHOLECALCIFEROL [Concomitant]
     Active Substance: CHOLECALCIFEROL
  13. HEPARIN SODIUM [Concomitant]
     Active Substance: HEPARIN SODIUM
     Dosage: 5000IE
     Dates: start: 20230210, end: 20230317
  14. ALBUMIN HUMAN [Concomitant]
     Active Substance: ALBUMIN HUMAN
     Dosage: 5000IE, BID
     Dates: start: 20230217, end: 20230310
  15. LOPERAMIDE [Concomitant]
     Active Substance: LOPERAMIDE
     Dosage: UNK
  16. FENTANYL CITRATE [Concomitant]
     Active Substance: FENTANYL CITRATE
     Indication: Pain
     Dosage: 100 MILLIGRAM
     Dates: start: 20230306, end: 20230317
  17. ONDANSETRON [Concomitant]
     Active Substance: ONDANSETRON
     Dosage: UNK
  18. POTASSIUM [Concomitant]
     Active Substance: POTASSIUM
     Indication: Blood potassium increased
     Dosage: 20 MMOL
     Dates: start: 20230213, end: 20230214
  19. AMPHOTERICIN B [Concomitant]
     Active Substance: AMPHOTERICIN B
     Dates: start: 20230214
  20. LERCANIDIPINE [Concomitant]
     Active Substance: LERCANIDIPINE
     Dosage: UNK
  21. OXYCODONE [Concomitant]
     Active Substance: OXYCODONE
     Indication: Pain
     Dates: start: 20230304, end: 20230308
  22. FENTANYL [Concomitant]
     Active Substance: FENTANYL
     Indication: Pain
     Dosage: 25 GRAM
     Dates: start: 20230306, end: 20230312
  23. LANTUS [Concomitant]
     Active Substance: INSULIN GLARGINE
     Indication: Diabetes mellitus
     Dosage: 100IE PEN
     Dates: end: 20230317
  24. METOCLOPRAMIDE [Concomitant]
     Active Substance: METOCLOPRAMIDE
  25. SPIRONOLACTONE [Concomitant]
     Active Substance: SPIRONOLACTONE
     Dosage: 12.5 MILLIGRAM, QD
     Route: 065
     Dates: start: 20221223, end: 20230317
  26. CANDESARTAN [Concomitant]
     Active Substance: CANDESARTAN
  27. CITALOPRAM [Concomitant]
     Active Substance: CITALOPRAM HYDROBROMIDE
  28. OLIMEL PERIFER N4E [Concomitant]
     Dosage: UNK
     Dates: start: 20230210, end: 20230317
  29. DIMENHYDRINATE [Concomitant]
     Active Substance: DIMENHYDRINATE
     Indication: Nausea
     Dosage: 6.2 MG/ML
     Dates: start: 20230304, end: 20230316
  30. FERROUS SULFATE [Concomitant]
     Active Substance: FERROUS SULFATE
  31. ELIQUIS [Concomitant]
     Active Substance: APIXABAN
     Dosage: UNK
  32. NALOXONE [Concomitant]
     Active Substance: NALOXONE
     Indication: Pain
     Dosage: 2.5 MILLIGRAM, BID
     Dates: start: 20230304, end: 20230307

REACTIONS (2)
  - Sepsis [Fatal]
  - Neoplasm malignant [Fatal]

NARRATIVE: CASE EVENT DATE: 20230210
